FAERS Safety Report 22033457 (Version 1)
Quarter: 2023Q1

REPORT INFORMATION
  Report Type: Report from Study
  Country: US (occurrence: US)
  Receive Date: 20230224
  Receipt Date: 20230224
  Transmission Date: 20230418
  Serious: Yes (Other)
  Sender: FDA-Public Use
  Company Number: US-OTSUKA-2023_004820

PATIENT
  Sex: Female

DRUGS (1)
  1. TOLVAPTAN [Suspect]
     Active Substance: TOLVAPTAN
     Indication: Congenital cystic kidney disease
     Dosage: UNK
     Route: 065
     Dates: start: 20220522

REACTIONS (4)
  - Cardiac flutter [Unknown]
  - Heart rate increased [Unknown]
  - Dyspnoea [Unknown]
  - Polydipsia [Unknown]

NARRATIVE: CASE EVENT DATE: 20230220
